FAERS Safety Report 12312655 (Version 2)
Quarter: 2016Q2

REPORT INFORMATION
  Report Type: Spontaneous
  Country: IT (occurrence: IT)
  Receive Date: 20160428
  Receipt Date: 20160629
  Transmission Date: 20160815
  Serious: Yes (Hospitalization)
  Sender: FDA-Public Use
  Company Number: IT-AUROBINDO-AUR-APL-2016-05108

PATIENT
  Age: 76 Year
  Sex: Male

DRUGS (9)
  1. BLOPRESS [Concomitant]
     Active Substance: CANDESARTAN CILEXETIL
     Indication: PRODUCT USED FOR UNKNOWN INDICATION
     Route: 048
  2. MEDROL [Concomitant]
     Active Substance: METHYLPREDNISOLONE
     Indication: MYALGIA
     Dosage: 8 MG, UNK
     Route: 048
     Dates: start: 20160329
  3. TORVAST [Suspect]
     Active Substance: ATORVASTATIN
     Indication: PRODUCT USED FOR UNKNOWN INDICATION
     Dosage: 10 MG, DAILY
     Route: 048
     Dates: start: 20140930
  4. MOXIFLOXACIN AUROBINDO 400 MG FILM-COATED TABLET [Suspect]
     Active Substance: MOXIFLOXACIN
     Indication: PYREXIA
     Dosage: 400 MG, DAILY
     Route: 048
     Dates: start: 20160322, end: 20160330
  5. CEFTRIAXONE. [Suspect]
     Active Substance: CEFTRIAXONE
     Indication: PYREXIA
     Dosage: 1 G, DAILY
     Route: 030
     Dates: start: 20160322, end: 20160330
  6. TICLOPIDINE [Concomitant]
     Active Substance: TICLOPIDINE
     Indication: PRODUCT USED FOR UNKNOWN INDICATION
     Route: 048
  7. ALLOPURINOL. [Concomitant]
     Active Substance: ALLOPURINOL
     Indication: PRODUCT USED FOR UNKNOWN INDICATION
     Route: 048
  8. CARDICOR [Concomitant]
     Active Substance: BISOPROLOL
     Indication: PRODUCT USED FOR UNKNOWN INDICATION
     Route: 048
  9. NORVASC [Concomitant]
     Active Substance: AMLODIPINE BESYLATE
     Indication: PRODUCT USED FOR UNKNOWN INDICATION
     Route: 048

REACTIONS (3)
  - Pain in extremity [Recovered/Resolved]
  - Pruritus generalised [Recovered/Resolved]
  - Mechanical urticaria [Recovered/Resolved]

NARRATIVE: CASE EVENT DATE: 20160402
